FAERS Safety Report 21076626 (Version 1)
Quarter: 2022Q3

REPORT INFORMATION
  Report Type: Spontaneous
  Country: US (occurrence: US)
  Receive Date: 20220713
  Receipt Date: 20220713
  Transmission Date: 20221027
  Serious: No
  Sender: FDA-Public Use
  Company Number: US-FreseniusKabi-FK202209694

PATIENT
  Sex: Female

DRUGS (2)
  1. OMEGAVEN [Suspect]
     Active Substance: FISH OIL
     Indication: Parenteral nutrition
     Dosage: LOT/EXPRIY: ASKED BUT UNKNOWN
     Route: 042
     Dates: start: 20220424
  2. SMOFLIPID [Suspect]
     Active Substance: FISH OIL\MEDIUM-CHAIN TRIGLYCERIDES\OLIVE OIL\SOYBEAN OIL
     Indication: Parenteral nutrition
     Dosage: LOT/EXPRIY: ASKED BUT UNKNOWN
     Route: 042
     Dates: end: 20220420

REACTIONS (2)
  - Fatty acid deficiency [Not Recovered/Not Resolved]
  - Blood bilirubin increased [Recovering/Resolving]

NARRATIVE: CASE EVENT DATE: 20220705
